FAERS Safety Report 6894824-9 (Version None)
Quarter: 2010Q3

REPORT INFORMATION
  Report Type: 
  Country: None (occurrence: None)
  Receive Date: 20100802
  Receipt Date: 20100728
  Transmission Date: 20110219
  Serious: Yes (Life-Threatening)
  Sender: FDA-Public Use
  Company Number: SE-ASTRAZENECA-2010SE35292

PATIENT
  Sex: Female

DRUGS (1)
  1. NAROPIN [Suspect]
     Route: 008

REACTIONS (2)
  - CARDIAC ARREST [None]
  - OVERDOSE [None]
